FAERS Safety Report 24965814 (Version 2)
Quarter: 2025Q1

REPORT INFORMATION
  Report Type: Spontaneous
  Country: CA (occurrence: CA)
  Receive Date: 20250213
  Receipt Date: 20250313
  Transmission Date: 20250409
  Serious: Yes (Disabling, Other)
  Sender: INSUD PHARMA
  Company Number: CA-DUCHESNAY-2025CA000031

PATIENT
  Age: 32 Year
  Sex: Female
  Weight: 87.982 kg

DRUGS (1)
  1. DROSPIRENONE [Suspect]
     Active Substance: DROSPIRENONE
     Indication: Contraception
     Dosage: 1 EVERY 1 DAYS
     Route: 048
     Dates: start: 20240716, end: 20240818

REACTIONS (4)
  - Insomnia [Recovered/Resolved]
  - Panic attack [Recovered/Resolved]
  - Anxiety [Recovered/Resolved]
  - Fatigue [Recovered/Resolved]

NARRATIVE: CASE EVENT DATE: 20240718
